FAERS Safety Report 7955159-6 (Version None)
Quarter: 2011Q4

REPORT INFORMATION
  Report Type: 
  Country: None (occurrence: None)
  Receive Date: 20111202
  Receipt Date: 20111124
  Transmission Date: 20120403
  Serious: Yes (Disabling, Other)
  Sender: FDA-Public Use
  Company Number: BR-BAYER-2011-113494

PATIENT
  Age: 40 Year
  Sex: Female

DRUGS (10)
  1. DIPYRONE INJ [Concomitant]
     Indication: HEADACHE
     Dosage: 32 GTT, PRN
     Route: 048
     Dates: start: 20110501
  2. IBUPROFEN [Concomitant]
     Indication: PREMEDICATION
     Dosage: 1 DF, QOD
     Route: 048
     Dates: start: 20091030
  3. MECLOZINE [Concomitant]
     Indication: NAUSEA
  4. CLONAZEPAM [Concomitant]
     Indication: SLEEP DISORDER THERAPY
     Dosage: 2 MG, QD
     Route: 048
     Dates: start: 20070101
  5. IBUPROFEN [Concomitant]
     Dosage: UNK
     Route: 048
     Dates: start: 20100930
  6. BETASERON [Suspect]
     Indication: RELAPSING-REMITTING MULTIPLE SCLEROSIS
     Dosage: 9.6 MIU, QOD
     Route: 058
     Dates: start: 20091030, end: 20111122
  7. DIPYRONE INJ [Concomitant]
  8. MECLOZINE [Concomitant]
     Indication: DIZZINESS
     Dosage: 25 MG, QD
     Route: 048
     Dates: start: 20070101
  9. IBUPROFEN [Concomitant]
     Dosage: UNK
     Route: 048
     Dates: start: 20100930
  10. CLONAZEPAM [Concomitant]
     Indication: OTOSCLEROSIS

REACTIONS (15)
  - INFLUENZA [None]
  - VOMITING [None]
  - LEFT VENTRICULAR DYSFUNCTION [None]
  - ABASIA [None]
  - PYREXIA [None]
  - ASTHENIA [None]
  - FATIGUE [None]
  - HEADACHE [None]
  - MULTIPLE SCLEROSIS [None]
  - PAIN [None]
  - LABYRINTHITIS [None]
  - MUSCULAR WEAKNESS [None]
  - CHILLS [None]
  - TREMOR [None]
  - INFLUENZA LIKE ILLNESS [None]
